FAERS Safety Report 9357653 (Version 2)
Quarter: 2013Q3

REPORT INFORMATION
  Report Type: Spontaneous
  Country: DZ (occurrence: DZ)
  Receive Date: 20130620
  Receipt Date: 20130708
  Transmission Date: 20140515
  Serious: Yes (Other)
  Sender: FDA-Public Use
  Company Number: DZ-ROCHE-1238129

PATIENT
  Sex: Female

DRUGS (2)
  1. PEGASYS [Suspect]
     Indication: HEPATITIS C
     Route: 058
     Dates: start: 2012, end: 201302
  2. COPEGUS [Suspect]
     Indication: HEPATITIS C
     Route: 048
     Dates: start: 2012, end: 201302

REACTIONS (7)
  - Mobility decreased [Unknown]
  - Sensory loss [Unknown]
  - Peripheral sensorimotor neuropathy [Unknown]
  - Paraesthesia [Unknown]
  - Aphagia [Unknown]
  - Abasia [Unknown]
  - Vitiligo [Unknown]
